FAERS Safety Report 8416632-X (Version None)
Quarter: 2012Q2

REPORT INFORMATION
  Report Type: 
  Country: None (occurrence: None)
  Receive Date: 20120606
  Receipt Date: 20120529
  Transmission Date: 20120825
  Serious: Yes (Death)
  Sender: FDA-Public Use
  Company Number: NL-JNJFOC-20120521394

PATIENT
  Sex: Female
  Weight: 104 kg

DRUGS (15)
  1. OXAZEPAM [Concomitant]
  2. NOZINAN [Concomitant]
  3. METFORMIN HCL [Concomitant]
  4. LEVOTHYROXINE SODIUM [Concomitant]
  5. XARELTO [Suspect]
     Indication: KNEE ARTHROPLASTY
     Route: 065
     Dates: start: 20120522
  6. IMIPRAMINE [Concomitant]
  7. PROMETHAZINE [Concomitant]
  8. SEROQUEL [Concomitant]
  9. PANTOPRAZOLE [Concomitant]
  10. ACETAMINOPHEN [Concomitant]
  11. DEPAKENE [Concomitant]
  12. LITHIUM [Concomitant]
  13. XARELTO [Suspect]
     Indication: THROMBOSIS PROPHYLAXIS
     Route: 065
     Dates: start: 20120522
  14. MIRTAZAPINE [Concomitant]
  15. SUMATRIPTAN SUCCINATE [Concomitant]

REACTIONS (1)
  - PULMONARY EMBOLISM [None]
